FAERS Safety Report 13862845 (Version 1)
Quarter: 2017Q3

REPORT INFORMATION
  Report Type: Spontaneous
  Country: US (occurrence: US)
  Receive Date: 20170814
  Receipt Date: 20170814
  Transmission Date: 20171127
  Serious: No
  Sender: FDA-Public Use
  Company Number: US-TEVA-778198USA

PATIENT
  Sex: Male

DRUGS (1)
  1. IMATINIB MESYLATE. [Suspect]
     Active Substance: IMATINIB MESYLATE
     Route: 065

REACTIONS (4)
  - Vomiting [Recovering/Resolving]
  - Nausea [Recovered/Resolved]
  - Crying [Recovered/Resolved]
  - Retching [Unknown]
